FAERS Safety Report 4520947-5 (Version None)
Quarter: 2004Q4

REPORT INFORMATION
  Report Type: 
  Country: None (occurrence: None)
  Receive Date: 20041206
  Receipt Date: 20041122
  Transmission Date: 20050328
  Serious: Yes (Congenital Anomaly)
  Sender: FDA-Public Use
  Company Number: M2004-1788

PATIENT
  Age: 38 Week
  Sex: Female
  Weight: 3 kg

DRUGS (7)
  1. AMOXICILLIN [Suspect]
     Dosage: TRANS-PLACENTAL
     Route: 064
     Dates: start: 20030811, end: 20030818
  2. RANITIDINE [Suspect]
     Dosage: TRANS-PLACENTAL
     Route: 064
     Dates: start: 20030627
  3. VIRUS INFLUENZA (VIRUS INFLUENZA) [Suspect]
     Dates: start: 20031016
  4. IRON (IRON) [Suspect]
     Dosage: TRANSPLACENTAL
     Route: 064
     Dates: start: 20030924, end: 20031201
  5. PERMETHRIN [Suspect]
     Dosage: TRANSPLACENTAL
     Route: 064
     Dates: start: 20030916
  6. SALBUTAMOL (SALBUTAMOL) [Suspect]
  7. BECLOMETHASONE (BECLOMETHASONE) [Suspect]

REACTIONS (3)
  - CONGENITAL ANOMALY [None]
  - DRUG EXPOSURE DURING PREGNANCY [None]
  - TALIPES [None]
